FAERS Safety Report 10431161 (Version 6)
Quarter: 2015Q1

REPORT INFORMATION
  Report Type: Spontaneous
  Country: US (occurrence: US)
  Receive Date: 20140904
  Receipt Date: 20150330
  Transmission Date: 20150720
  Serious: Yes (Hospitalization)
  Sender: FDA-Public Use
  Company Number: US-BAYER-2014-129551

PATIENT
  Age: 24 Year
  Sex: Female
  Weight: 75 kg

DRUGS (2)
  1. ANCEF [Concomitant]
     Active Substance: CEFAZOLIN SODIUM
  2. MIRENA [Suspect]
     Active Substance: LEVONORGESTREL
     Indication: CONTRACEPTION
     Dosage: 20 MCG/24HR, CONT
     Route: 015
     Dates: start: 20131231, end: 20140220

REACTIONS (8)
  - Amenorrhoea [Not Recovered/Not Resolved]
  - Device dislocation [None]
  - Device issue [None]
  - Uterine perforation [None]
  - Complication of device removal [None]
  - Injury [None]
  - Pain [None]
  - Device breakage [None]

NARRATIVE: CASE EVENT DATE: 201401
